FAERS Safety Report 26072853 (Version 1)
Quarter: 2025Q4

REPORT INFORMATION
  Report Type: Spontaneous
  Country: EU (occurrence: EU)
  Receive Date: 20251121
  Receipt Date: 20251121
  Transmission Date: 20260117
  Serious: Yes (Other)
  Sender: JOHNSON AND JOHNSON
  Company Number: None

PATIENT
  Sex: Male

DRUGS (1)
  1. XARELTO [Suspect]
     Active Substance: RIVAROXABAN
     Indication: Product used for unknown indication
     Dosage: 2.5 MG
     Route: 048

REACTIONS (16)
  - Renal haemorrhage [Unknown]
  - Anticoagulant-related nephropathy [Unknown]
  - Renal impairment [Unknown]
  - Cerebral haemorrhage [Unknown]
  - Haemarthrosis [Unknown]
  - Thrombocytopenia [Unknown]
  - Gastrointestinal haemorrhage [Unknown]
  - Hypersensitivity [Unknown]
  - Dermatitis allergic [Unknown]
  - Blood test abnormal [Unknown]
  - Blood urine present [Unknown]
  - Pyrexia [Unknown]
  - Arthralgia [Unknown]
  - Joint swelling [Unknown]
  - Epistaxis [Unknown]
  - Gingival bleeding [Unknown]
